FAERS Safety Report 23713450 (Version 1)
Quarter: 2024Q2

REPORT INFORMATION
  Report Type: Spontaneous
  Country: CN (occurrence: None)
  Receive Date: 20240405
  Receipt Date: 20240405
  Transmission Date: 20240716
  Serious: Yes (Other)
  Sender: FDA-Public Use
  Company Number: 2024A079466

PATIENT
  Age: 66 Year
  Sex: Female
  Weight: 50 kg

DRUGS (2)
  1. BUDESONIDE [Suspect]
     Active Substance: BUDESONIDE
     Indication: Antiinflammatory therapy
     Dosage: TRACHEAL/ENDOBRONCHIAL ADMINISTRATION
     Route: 055
     Dates: start: 20110511, end: 20210514
  2. BUDESONIDE [Suspect]
     Active Substance: BUDESONIDE
     Indication: Asthma
     Dosage: TRACHEAL/ENDOBRONCHIAL ADMINISTRATION
     Route: 055
     Dates: start: 20110511, end: 20210514

REACTIONS (4)
  - Dyspnoea [Recovering/Resolving]
  - Vertigo [Recovering/Resolving]
  - Muscular weakness [Recovering/Resolving]
  - Dysstasia [Recovering/Resolving]

NARRATIVE: CASE EVENT DATE: 20210514
